FAERS Safety Report 8231094-3 (Version None)
Quarter: 2012Q1

REPORT INFORMATION
  Report Type: 
  Country: None (occurrence: None)
  Receive Date: 20120322
  Receipt Date: 20120322
  Transmission Date: 20120608
  Serious: Yes (Other)
  Sender: FDA-Public Use
  Company Number: None

PATIENT
  Sex: Male

DRUGS (3)
  1. GEMFIBROZIL [Concomitant]
  2. CYMBALTA [Suspect]
     Indication: FIBROMYALGIA
     Route: 048
     Dates: start: 20100101, end: 20111201
  3. HYDROCHLOROTHIAZIDE [Concomitant]

REACTIONS (5)
  - MALAISE [None]
  - DISTURBANCE IN ATTENTION [None]
  - ABNORMAL BEHAVIOUR [None]
  - SEROTONIN SYNDROME [None]
  - DRUG WITHDRAWAL SYNDROME [None]
